FAERS Safety Report 11927108 (Version 1)
Quarter: 2016Q1

REPORT INFORMATION
  Report Type: Spontaneous
  Country: FR (occurrence: FR)
  Receive Date: 20160119
  Receipt Date: 20160119
  Transmission Date: 20160526
  Serious: Yes (Hospitalization)
  Sender: FDA-Public Use
  Company Number: PHHY2016FR002562

PATIENT
  Age: 87 Year
  Sex: Female

DRUGS (12)
  1. FORLAX [Concomitant]
     Active Substance: POLYETHYLENE GLYCOL 4000
     Indication: PRODUCT USED FOR UNKNOWN INDICATION
     Dosage: 10 G, UNK
     Route: 065
  2. AMOXICILLIN SANDOZ [Suspect]
     Active Substance: AMOXICILLIN
     Indication: URINARY TRACT INFECTION
     Dosage: 1 G, BID
     Route: 048
     Dates: start: 20151130, end: 20151206
  3. AMLODIPINE [Concomitant]
     Active Substance: AMLODIPINE BESYLATE
     Indication: PRODUCT USED FOR UNKNOWN INDICATION
     Dosage: 5 MG, UNK
     Route: 048
  4. IRBESARTAN. [Concomitant]
     Active Substance: IRBESARTAN
     Indication: PRODUCT USED FOR UNKNOWN INDICATION
     Dosage: 75 MG, UNK
     Route: 048
  5. EXELON [Concomitant]
     Active Substance: RIVASTIGMINE TARTRATE
     Indication: PRODUCT USED FOR UNKNOWN INDICATION
     Dosage: 4.6 MG, UNK
     Route: 062
  6. OMEPRAZOLE. [Concomitant]
     Active Substance: OMEPRAZOLE
     Indication: PRODUCT USED FOR UNKNOWN INDICATION
     Dosage: 20 MG, UNK
     Route: 048
  7. MIANSERIN [Concomitant]
     Active Substance: MIANSERIN
     Indication: PRODUCT USED FOR UNKNOWN INDICATION
     Dosage: 10 MG, UNK
     Route: 048
  8. GAVISCON [Concomitant]
     Active Substance: ALUMINUM HYDROXIDE\MAGNESIUM CARBONATE
     Indication: PRODUCT USED FOR UNKNOWN INDICATION
     Route: 065
  9. UVEDOSE [Concomitant]
     Active Substance: CHOLECALCIFEROL
     Indication: PRODUCT USED FOR UNKNOWN INDICATION
     Route: 065
  10. KARDEGIC [Concomitant]
     Active Substance: ASPIRIN LYSINE
     Indication: PRODUCT USED FOR UNKNOWN INDICATION
     Dosage: 75 MG, UNK
     Route: 048
  11. DAFALGAN [Concomitant]
     Active Substance: ACETAMINOPHEN
     Indication: PRODUCT USED FOR UNKNOWN INDICATION
     Dosage: 500 MG, UNK
     Route: 065
  12. PEVARYL [Concomitant]
     Active Substance: ECONAZOLE NITRATE
     Indication: PRODUCT USED FOR UNKNOWN INDICATION
     Route: 065

REACTIONS (4)
  - Hypotension [Recovered/Resolved]
  - Abnormal behaviour [Unknown]
  - Erythema [Recovered/Resolved]
  - Purpura [Recovered/Resolved]

NARRATIVE: CASE EVENT DATE: 20151206
